FAERS Safety Report 4885179-X (Version None)
Quarter: 2005Q4

REPORT INFORMATION
  Report Type: 
  Country: None (occurrence: None)
  Receive Date: 20051201
  Receipt Date: 20050904
  Transmission Date: 20060501
  Serious: No
  Sender: FDA-Public Use
  Company Number: 2005PV001822

PATIENT
  Age: 82 Year
  Sex: Male
  Weight: 83.9154 kg

DRUGS (6)
  1. BYETTA [Suspect]
     Indication: DIABETES MELLITUS NON-INSULIN-DEPENDENT
     Dosage: 5 MCG; BID; SC
     Route: 058
     Dates: start: 20050724
  2. PRILOSEC [Concomitant]
  3. NEURONTIN [Concomitant]
  4. ENALAPRIL [Concomitant]
  5. GLYBURIDE AND METFORMIN HCL [Concomitant]
  6. LIPITOR [Concomitant]

REACTIONS (3)
  - FLATULENCE [None]
  - GINGIVAL INFECTION [None]
  - INFECTION [None]
